FAERS Safety Report 10513451 (Version 11)
Quarter: 2016Q4

REPORT INFORMATION
  Report Type: Report from Study
  Country: TR (occurrence: TR)
  Receive Date: 20141013
  Receipt Date: 20161227
  Transmission Date: 20170206
  Serious: Yes (Hospitalization)
  Sender: FDA-Public Use
  Company Number: TR-ROCHE-1471777

PATIENT
  Age: 71 Year
  Sex: Female
  Weight: 62.4 kg

DRUGS (106)
  1. DEKORT [Concomitant]
     Active Substance: DEXAMETHASONE
     Route: 042
     Dates: start: 20141208, end: 20141208
  2. FILGRASTIM [Concomitant]
     Active Substance: FILGRASTIM
     Indication: NEUTROPENIA
     Dosage: 48 MU
     Route: 042
     Dates: start: 20140717, end: 20140721
  3. FILGRASTIM [Concomitant]
     Active Substance: FILGRASTIM
     Dosage: 48 MU
     Route: 058
     Dates: start: 20141001, end: 20141014
  4. OMNIPAQUE [Concomitant]
     Active Substance: IOHEXOL
     Dosage: 350 MG/ML
     Route: 042
     Dates: start: 20150622, end: 20150622
  5. OBINUTUZUMAB [Suspect]
     Active Substance: OBINUTUZUMAB
     Dosage: C1D2
     Route: 042
     Dates: start: 20140704, end: 20140705
  6. OBINUTUZUMAB [Suspect]
     Active Substance: OBINUTUZUMAB
     Dosage: C1D8
     Route: 042
     Dates: start: 20140716, end: 20140716
  7. OBINUTUZUMAB [Suspect]
     Active Substance: OBINUTUZUMAB
     Dosage: C5D1
     Route: 042
     Dates: start: 20141110, end: 20141110
  8. BENDAMUSTINE [Suspect]
     Active Substance: BENDAMUSTINE
     Dosage: C1D2
     Route: 042
     Dates: start: 20140705, end: 20140705
  9. BENDAMUSTINE [Suspect]
     Active Substance: BENDAMUSTINE
     Dosage: C2D2
     Route: 042
     Dates: start: 20140808, end: 20140808
  10. BENDAMUSTINE [Suspect]
     Active Substance: BENDAMUSTINE
     Dosage: C6D1
     Route: 042
     Dates: start: 20141208, end: 20141208
  11. DEXAMETHASONE. [Concomitant]
     Active Substance: DEXAMETHASONE
     Route: 042
     Dates: start: 20140703, end: 20140703
  12. AVIL [Concomitant]
     Active Substance: PHENIRAMINE
     Route: 042
     Dates: start: 20140704, end: 20140704
  13. AVIL [Concomitant]
     Active Substance: PHENIRAMINE
     Route: 042
     Dates: start: 20140723, end: 20140723
  14. AVIL [Concomitant]
     Active Substance: PHENIRAMINE
     Route: 042
     Dates: start: 20140807, end: 20140807
  15. GRANISETRON [Concomitant]
     Active Substance: GRANISETRON
     Route: 042
     Dates: start: 20140808, end: 20140808
  16. GRANISETRON [Concomitant]
     Active Substance: GRANISETRON
     Route: 042
     Dates: start: 20141014, end: 20141014
  17. GRANISETRON [Concomitant]
     Active Substance: GRANISETRON
     Route: 042
     Dates: start: 20141110, end: 20141110
  18. GRANISETRON [Concomitant]
     Active Substance: GRANISETRON
     Route: 042
     Dates: start: 20141111, end: 20141111
  19. RANITIDINE. [Concomitant]
     Active Substance: RANITIDINE
     Route: 042
     Dates: start: 20140716, end: 20140716
  20. PARACETAMOL [Concomitant]
     Active Substance: ACETAMINOPHEN
     Indication: PROPHYLAXIS
     Route: 048
     Dates: start: 20140703, end: 20140703
  21. DEKORT [Concomitant]
     Active Substance: DEXAMETHASONE
     Indication: PROPHYLAXIS
     Route: 042
     Dates: start: 20140704, end: 20140704
  22. DEKORT [Concomitant]
     Active Substance: DEXAMETHASONE
     Route: 042
     Dates: start: 20141110, end: 20141110
  23. UROGRAFIN [Concomitant]
     Active Substance: DIATRIZOATE MEGLUMINE\DIATRIZOATE SODIUM
     Route: 048
     Dates: start: 20141001, end: 20141001
  24. UROGRAFIN [Concomitant]
     Active Substance: DIATRIZOATE MEGLUMINE\DIATRIZOATE SODIUM
     Route: 048
     Dates: start: 20150914, end: 20150914
  25. CIPRO [Concomitant]
     Active Substance: CIPROFLOXACIN HYDROCHLORIDE
     Indication: PROPHYLAXIS
     Route: 048
     Dates: start: 20141014, end: 20141020
  26. OBINUTUZUMAB [Suspect]
     Active Substance: OBINUTUZUMAB
     Dosage: C1D15
     Route: 042
     Dates: start: 20140723, end: 20140723
  27. BENDAMUSTINE [Suspect]
     Active Substance: BENDAMUSTINE
     Dosage: C5D1
     Route: 042
     Dates: start: 20141110, end: 20141110
  28. BENDAMUSTINE [Suspect]
     Active Substance: BENDAMUSTINE
     Dosage: C5D2
     Route: 042
     Dates: start: 20141111, end: 20141111
  29. AVIL [Concomitant]
     Active Substance: PHENIRAMINE
     Route: 042
     Dates: start: 20140909, end: 20140909
  30. GRANISETRON [Concomitant]
     Active Substance: GRANISETRON
     Indication: PROPHYLAXIS
     Route: 042
     Dates: start: 20140703, end: 20140703
  31. GRANISETRON [Concomitant]
     Active Substance: GRANISETRON
     Route: 042
     Dates: start: 20140807, end: 20140807
  32. RANITIDINE. [Concomitant]
     Active Substance: RANITIDINE
     Route: 042
     Dates: start: 20140723, end: 20140723
  33. RANITIDINE. [Concomitant]
     Active Substance: RANITIDINE
     Route: 042
     Dates: start: 20140909, end: 20140909
  34. RANITIDINE. [Concomitant]
     Active Substance: RANITIDINE
     Route: 042
     Dates: start: 20141013, end: 20141013
  35. PARACETAMOL [Concomitant]
     Active Substance: ACETAMINOPHEN
     Dosage: 40 MG/ML
     Route: 065
     Dates: start: 20160113, end: 20160113
  36. DEKORT [Concomitant]
     Active Substance: DEXAMETHASONE
     Route: 042
     Dates: start: 20141013, end: 20141013
  37. FILGRASTIM [Concomitant]
     Active Substance: FILGRASTIM
     Dosage: 48 MU
     Route: 058
     Dates: start: 20160114, end: 20160125
  38. OBINUTUZUMAB [Suspect]
     Active Substance: OBINUTUZUMAB
     Dosage: C3D1; DATE OF LAST DOSE PRIOR TO FIRST EPISODE OF FEBRILE NEUTROPENIA: 08/SEP/2014.
     Route: 042
     Dates: start: 20140908, end: 20140908
  39. OBINUTUZUMAB [Suspect]
     Active Substance: OBINUTUZUMAB
     Dosage: C4D1;
     Route: 042
     Dates: start: 20141013, end: 20141013
  40. BENDAMUSTINE [Suspect]
     Active Substance: BENDAMUSTINE
     Dosage: C3D1
     Route: 042
     Dates: start: 20140908, end: 20140908
  41. AVIL [Concomitant]
     Active Substance: PHENIRAMINE
     Route: 042
     Dates: start: 20141013, end: 20141013
  42. GRANISETRON [Concomitant]
     Active Substance: GRANISETRON
     Route: 042
     Dates: start: 20140704, end: 20140704
  43. GRANISETRON [Concomitant]
     Active Substance: GRANISETRON
     Route: 042
     Dates: start: 20140716, end: 20140716
  44. GRANISETRON [Concomitant]
     Active Substance: GRANISETRON
     Route: 042
     Dates: start: 20140908, end: 20140908
  45. GRANISETRON [Concomitant]
     Active Substance: GRANISETRON
     Route: 042
     Dates: start: 20141209, end: 20141209
  46. RANITIDINE. [Concomitant]
     Active Substance: RANITIDINE
     Route: 042
     Dates: start: 20140807, end: 20140807
  47. RANITIDINE. [Concomitant]
     Active Substance: RANITIDINE
     Route: 042
     Dates: start: 20140808, end: 20140808
  48. RANITIDINE. [Concomitant]
     Active Substance: RANITIDINE
     Route: 042
     Dates: start: 20141014, end: 20141014
  49. RANITIDINE. [Concomitant]
     Active Substance: RANITIDINE
     Route: 042
     Dates: start: 20141208, end: 20141208
  50. RANITIDINE. [Concomitant]
     Active Substance: RANITIDINE
     Route: 042
     Dates: start: 20141209, end: 20141209
  51. ALLOPURINOL. [Concomitant]
     Active Substance: ALLOPURINOL
     Indication: PROPHYLAXIS
     Route: 048
     Dates: start: 20140703, end: 20140708
  52. FILGRASTIM [Concomitant]
     Active Substance: FILGRASTIM
     Dosage: 48MU
     Route: 058
     Dates: start: 20141014, end: 20141018
  53. BENDAMUSTINE [Suspect]
     Active Substance: BENDAMUSTINE
     Indication: CHRONIC LYMPHOCYTIC LEUKAEMIA
     Dosage: C1D1
     Route: 042
     Dates: start: 20140704, end: 20140704
  54. AVIL [Concomitant]
     Active Substance: PHENIRAMINE
     Route: 042
     Dates: start: 20141209, end: 20141209
  55. AVIL [Concomitant]
     Active Substance: PHENIRAMINE
     Route: 042
     Dates: start: 20141208, end: 20141208
  56. RANITIDINE. [Concomitant]
     Active Substance: RANITIDINE
     Route: 042
     Dates: start: 20140908, end: 20140908
  57. DEKORT [Concomitant]
     Active Substance: DEXAMETHASONE
     Route: 042
     Dates: start: 20141209, end: 20141209
  58. FILGRASTIM [Concomitant]
     Active Substance: FILGRASTIM
     Dosage: 48 MU
     Route: 058
     Dates: start: 20160125, end: 20160129
  59. OMNIPAQUE [Concomitant]
     Active Substance: IOHEXOL
     Dosage: 350 MG/ML
     Route: 042
     Dates: start: 20140627, end: 20140627
  60. OMNIPAQUE [Concomitant]
     Active Substance: IOHEXOL
     Dosage: 350 MG/ML
     Route: 042
     Dates: start: 20160229, end: 20160229
  61. UROGRAFIN [Concomitant]
     Active Substance: DIATRIZOATE MEGLUMINE\DIATRIZOATE SODIUM
     Route: 048
     Dates: start: 20140627, end: 20140627
  62. UROGRAFIN [Concomitant]
     Active Substance: DIATRIZOATE MEGLUMINE\DIATRIZOATE SODIUM
     Route: 048
     Dates: start: 20160229, end: 20160229
  63. OBINUTUZUMAB [Suspect]
     Active Substance: OBINUTUZUMAB
     Indication: CHRONIC LYMPHOCYTIC LEUKAEMIA
     Dosage: C1D1
     Route: 042
     Dates: start: 20140703, end: 20140704
  64. BENDAMUSTINE [Suspect]
     Active Substance: BENDAMUSTINE
     Dosage: C4D2
     Route: 042
     Dates: start: 20141014, end: 20141014
  65. DEXAMETHASONE. [Concomitant]
     Active Substance: DEXAMETHASONE
     Indication: PROPHYLAXIS
     Route: 048
     Dates: start: 20140703, end: 20140703
  66. GRANISETRON [Concomitant]
     Active Substance: GRANISETRON
     Route: 042
     Dates: start: 20140909, end: 20140909
  67. GRANISETRON [Concomitant]
     Active Substance: GRANISETRON
     Route: 042
     Dates: start: 20141208, end: 20141208
  68. RANITIDINE. [Concomitant]
     Active Substance: RANITIDINE
     Route: 042
     Dates: start: 20141110, end: 20141110
  69. DEKORT [Concomitant]
     Active Substance: DEXAMETHASONE
     Route: 042
     Dates: start: 20140723, end: 20140723
  70. DEKORT [Concomitant]
     Active Substance: DEXAMETHASONE
     Route: 042
     Dates: start: 20140807, end: 20140807
  71. DEKORT [Concomitant]
     Active Substance: DEXAMETHASONE
     Route: 042
     Dates: start: 20141111, end: 20141111
  72. UROGRAFIN [Concomitant]
     Active Substance: DIATRIZOATE MEGLUMINE\DIATRIZOATE SODIUM
     Route: 048
     Dates: start: 20150105, end: 20150105
  73. BENDAMUSTINE [Suspect]
     Active Substance: BENDAMUSTINE
     Dosage: C4D1
     Route: 042
     Dates: start: 20141013, end: 20141013
  74. AVIL [Concomitant]
     Active Substance: PHENIRAMINE
     Indication: PROPHYLAXIS
     Route: 042
     Dates: start: 20140703, end: 20140703
  75. AVIL [Concomitant]
     Active Substance: PHENIRAMINE
     Route: 042
     Dates: start: 20140716, end: 20140716
  76. AVIL [Concomitant]
     Active Substance: PHENIRAMINE
     Route: 042
     Dates: start: 20140808, end: 20140808
  77. AVIL [Concomitant]
     Active Substance: PHENIRAMINE
     Route: 042
     Dates: start: 20140908, end: 20140908
  78. GRANISETRON [Concomitant]
     Active Substance: GRANISETRON
     Route: 042
     Dates: start: 20141013, end: 20141013
  79. RANITIDINE. [Concomitant]
     Active Substance: RANITIDINE
     Indication: PROPHYLAXIS
     Route: 042
     Dates: start: 20140703, end: 20140703
  80. RANITIDINE. [Concomitant]
     Active Substance: RANITIDINE
     Route: 042
     Dates: start: 20140704, end: 20140704
  81. FILGRASTIM [Concomitant]
     Active Substance: FILGRASTIM
     Indication: PROPHYLAXIS
     Dosage: 48 MU
     Route: 058
     Dates: start: 20140909, end: 20140913
  82. OMNIPAQUE [Concomitant]
     Active Substance: IOHEXOL
     Dosage: 350 MG/ML
     Route: 042
     Dates: start: 20150105, end: 20150105
  83. OMNIPAQUE [Concomitant]
     Active Substance: IOHEXOL
     Dosage: 350 MG/ML
     Route: 042
     Dates: start: 20150304, end: 20150304
  84. AUGMENTINE [Concomitant]
     Active Substance: AMOXICILLIN\CLAVULANATE POTASSIUM
     Indication: PROPHYLAXIS
     Route: 048
     Dates: start: 20141014, end: 20141017
  85. KARVEZIDE [Concomitant]
     Active Substance: HYDROCHLOROTHIAZIDE\IRBESARTAN
     Indication: HYPERTENSION
     Route: 048
     Dates: start: 2000
  86. BENDAMUSTINE [Suspect]
     Active Substance: BENDAMUSTINE
     Dosage: C2D1
     Route: 042
     Dates: start: 20140807, end: 20140807
  87. BENDAMUSTINE [Suspect]
     Active Substance: BENDAMUSTINE
     Dosage: C6D2
     Route: 042
     Dates: start: 20141209, end: 20141209
  88. AVIL [Concomitant]
     Active Substance: PHENIRAMINE
     Route: 042
     Dates: start: 20141110, end: 20141110
  89. GRANISETRON [Concomitant]
     Active Substance: GRANISETRON
     Route: 048
     Dates: start: 20140705, end: 20140709
  90. RANITIDINE. [Concomitant]
     Active Substance: RANITIDINE
     Route: 042
     Dates: start: 20141111, end: 20141111
  91. PARACETAMOL [Concomitant]
     Active Substance: ACETAMINOPHEN
     Dosage: INDICATION: SUPPLEMENT
     Route: 048
     Dates: start: 2013
  92. DEKORT [Concomitant]
     Active Substance: DEXAMETHASONE
     Route: 042
     Dates: start: 20140716, end: 20140716
  93. DEKORT [Concomitant]
     Active Substance: DEXAMETHASONE
     Route: 042
     Dates: start: 20140908, end: 20140908
  94. DEKORT [Concomitant]
     Active Substance: DEXAMETHASONE
     Route: 042
     Dates: start: 20140909, end: 20140909
  95. OMNIPAQUE [Concomitant]
     Active Substance: IOHEXOL
     Dosage: 350 MG/ML
     Route: 042
     Dates: start: 20141001, end: 20141001
  96. OMNIPAQUE [Concomitant]
     Active Substance: IOHEXOL
     Dosage: 350 MG/ML
     Route: 042
     Dates: start: 20150914, end: 20150914
  97. UROGRAFIN [Concomitant]
     Active Substance: DIATRIZOATE MEGLUMINE\DIATRIZOATE SODIUM
     Route: 048
     Dates: start: 20150304, end: 20150304
  98. UROGRAFIN [Concomitant]
     Active Substance: DIATRIZOATE MEGLUMINE\DIATRIZOATE SODIUM
     Route: 048
     Dates: start: 20150622, end: 20150622
  99. OBINUTUZUMAB [Suspect]
     Active Substance: OBINUTUZUMAB
     Dosage: C2D1
     Route: 042
     Dates: start: 20140807, end: 20140807
  100. OBINUTUZUMAB [Suspect]
     Active Substance: OBINUTUZUMAB
     Dosage: C6D1 LAST DOSE PRIOR TO SECOND EPISODE OF FEBRILE NEUTROPENIA.
     Route: 042
     Dates: start: 20141208, end: 20141208
  101. BENDAMUSTINE [Suspect]
     Active Substance: BENDAMUSTINE
     Dosage: C3D2: DATE OF LAST DOSE PRIOR TO FIRST EPISODE OF FEBRILE NEUTROPENIA: 09/SEP/2014.
     Route: 042
     Dates: start: 20140909, end: 20140909
  102. AVIL [Concomitant]
     Active Substance: PHENIRAMINE
     Route: 042
     Dates: start: 20141014, end: 20141014
  103. AVIL [Concomitant]
     Active Substance: PHENIRAMINE
     Route: 042
     Dates: start: 20141111, end: 20141111
  104. GRANISETRON [Concomitant]
     Active Substance: GRANISETRON
     Route: 042
     Dates: start: 20140723, end: 20140723
  105. DEKORT [Concomitant]
     Active Substance: DEXAMETHASONE
     Route: 042
     Dates: start: 20140808, end: 20140808
  106. DEKORT [Concomitant]
     Active Substance: DEXAMETHASONE
     Route: 042
     Dates: start: 20141014, end: 20141014

REACTIONS (2)
  - Febrile neutropenia [Recovered/Resolved]
  - Pneumonia [Recovered/Resolved]

NARRATIVE: CASE EVENT DATE: 20140908
